FAERS Safety Report 7529475-6 (Version None)
Quarter: 2011Q2

REPORT INFORMATION
  Report Type: 
  Country: None (occurrence: None)
  Receive Date: 20110531
  Receipt Date: 20110516
  Transmission Date: 20111010
  Serious: Yes (Hospitalization)
  Sender: FDA-Public Use
  Company Number: 2011MA005981

PATIENT
  Age: 44 Year
  Sex: Female

DRUGS (3)
  1. EIPINEPHRINE [Concomitant]
  2. ALBUTEROL SULFATE [Suspect]
     Indication: ASTHMA
  3. SALMETEROL [Concomitant]

REACTIONS (3)
  - LACTIC ACIDOSIS [None]
  - METABOLIC ACIDOSIS [None]
  - ANION GAP INCREASED [None]
